FAERS Safety Report 19116320 (Version 2)
Quarter: 2021Q2

REPORT INFORMATION
  Report Type: Spontaneous
  Country: HU (occurrence: HU)
  Receive Date: 20210409
  Receipt Date: 20210422
  Transmission Date: 20210717
  Serious: Yes (Other)
  Sender: FDA-Public Use
  Company Number: HU-SA-2021SA110468

PATIENT
  Age: 40 Year
  Sex: Female

DRUGS (2)
  1. CLEXANE INJECTION [Suspect]
     Active Substance: ENOXAPARIN SODIUM
     Indication: THROMBOSIS PROPHYLAXIS
     Dosage: UNK UNK, QD
     Route: 065
     Dates: start: 20210318, end: 20210322
  2. CLEXANE INJECTION [Suspect]
     Active Substance: ENOXAPARIN SODIUM
     Dosage: 4000 MG  5 X
     Route: 058
     Dates: start: 20210322, end: 20210322

REACTIONS (7)
  - Blood pressure systolic increased [Recovered/Resolved]
  - Intentional overdose [Unknown]
  - Loss of consciousness [Unknown]
  - Blood pressure fluctuation [Recovered/Resolved]
  - Malaise [Unknown]
  - Off label use [Unknown]
  - Heavy menstrual bleeding [Unknown]

NARRATIVE: CASE EVENT DATE: 20210322
